FAERS Safety Report 5095017-0 (Version None)
Quarter: 2006Q3

REPORT INFORMATION
  Report Type: 
  Country: None (occurrence: None)
  Receive Date: 20060731
  Receipt Date: 20060419
  Transmission Date: 20061208
  Serious: No
  Sender: FDA-Public Use
  Company Number: 2006PV012313

PATIENT
  Age: 60 Year
  Sex: Female
  Weight: 71.6683 kg

DRUGS (4)
  1. BYETTA [Suspect]
     Indication: DIABETES MELLITUS NON-INSULIN-DEPENDENT
     Dosage: 5 MCG;BID;SC
     Route: 058
     Dates: start: 20060417
  2. AMARYL [Concomitant]
  3. METFORMIN [Concomitant]
  4. AVANDIA [Concomitant]

REACTIONS (7)
  - ANXIETY [None]
  - BLOOD GLUCOSE DECREASED [None]
  - DIZZINESS [None]
  - FATIGUE [None]
  - HEADACHE [None]
  - INJECTION SITE HAEMORRHAGE [None]
  - NAUSEA [None]
